FAERS Safety Report 10238401 (Version 1)
Quarter: 2014Q2

REPORT INFORMATION
  Report Type: Spontaneous
  Country: US (occurrence: None)
  Receive Date: 20140613
  Receipt Date: 20140613
  Transmission Date: 20141212
  Serious: Yes (Other)
  Sender: FDA-Public Use
  Company Number: None

PATIENT
  Age: 52 Year
  Sex: Female

DRUGS (1)
  1. CIPRROFLOXACIN IV [Suspect]
     Indication: ANTIBIOTIC PROPHYLAXIS
     Dosage: 400MG ONCE OVER ONE HOURS INTRAVENOUS
     Route: 042
     Dates: start: 20140609, end: 20140609

REACTIONS (4)
  - Erythema [None]
  - Infusion related reaction [None]
  - Urticaria [None]
  - Pruritus [None]
